FAERS Safety Report 5269575-7 (Version None)
Quarter: 2007Q1

REPORT INFORMATION
  Report Type: 
  Country: None (occurrence: None)
  Receive Date: 20070320
  Receipt Date: 20070313
  Transmission Date: 20070707
  Serious: Yes (Congenital Anomaly)
  Sender: FDA-Public Use
  Company Number: AT-BAYER-200711500GDS

PATIENT
  Sex: Female

DRUGS (1)
  1. ADALAT VIA MOTHER [Suspect]
     Indication: TOCOLYSIS
     Route: 064

REACTIONS (1)
  - CEREBROVASCULAR ACCIDENT [None]
